FAERS Safety Report 23371482 (Version 1)
Quarter: 2024Q1

REPORT INFORMATION
  Report Type: Spontaneous
  Country: US (occurrence: US)
  Receive Date: 20240105
  Receipt Date: 20240105
  Transmission Date: 20240409
  Serious: No
  Sender: FDA-Public Use
  Company Number: US-009507513-2401USA000878

PATIENT
  Age: 69 Year
  Sex: Female

DRUGS (16)
  1. KEYTRUDA [Suspect]
     Active Substance: PEMBROLIZUMAB
     Indication: Endometrial cancer
     Dosage: 200 MILLIGRAM, Q3W
     Route: 042
     Dates: start: 202209
  2. POTASSIUM CHLORIDE [Concomitant]
     Active Substance: POTASSIUM CHLORIDE
  3. LOSARTAN [Concomitant]
     Active Substance: LOSARTAN
  4. LEVOTHYROXINE [Concomitant]
     Active Substance: LEVOTHYROXINE
  5. PRAVASTATIN [Concomitant]
     Active Substance: PRAVASTATIN
  6. VITAMIN E [Concomitant]
     Active Substance: .ALPHA.-TOCOPHEROL
  7. ZINC [Concomitant]
     Active Substance: PYRITHIONE ZINC\ZINC\ZINC CHLORIDE
  8. MAGNESIUM [Concomitant]
     Active Substance: MAGNESIUM
  9. HERBALS\TURMERIC [Concomitant]
     Active Substance: HERBALS\TURMERIC
  10. B 100 [Concomitant]
  11. LUTINE [Concomitant]
  12. BIOTIN [Concomitant]
     Active Substance: BIOTIN
  13. ZEAXANTHIN [Concomitant]
     Active Substance: ZEAXANTHIN
  14. KLS [Concomitant]
  15. IMMU C [Concomitant]
  16. LIQUID [Concomitant]
     Active Substance: TROLAMINE SALICYLATE

REACTIONS (2)
  - Fatigue [Not Recovered/Not Resolved]
  - Pruritus [Not Recovered/Not Resolved]

NARRATIVE: CASE EVENT DATE: 20230701
